FAERS Safety Report 24367206 (Version 2)
Quarter: 2024Q3

REPORT INFORMATION
  Report Type: Spontaneous
  Country: US (occurrence: US)
  Receive Date: 20240926
  Receipt Date: 20240927
  Transmission Date: 20241016
  Serious: Yes (Hospitalization, Other)
  Sender: PFIZER
  Company Number: US-SEATTLE GENETICS-2019SGN02497

PATIENT
  Age: 60 Year
  Sex: Female

DRUGS (4)
  1. ADCETRIS [Suspect]
     Active Substance: BRENTUXIMAB VEDOTIN
     Indication: Hodgkin^s disease
     Dosage: 1.2 MG/KG, UNK
     Route: 042
     Dates: start: 20190709
  2. DACARBAZINE [Suspect]
     Active Substance: DACARBAZINE
     Indication: Hodgkin^s disease
     Dosage: UNK
     Route: 065
     Dates: start: 20190709
  3. DOXORUBICIN HYDROCHLORIDE [Suspect]
     Active Substance: DOXORUBICIN HYDROCHLORIDE
     Indication: Hodgkin^s disease
     Dosage: UNK
     Route: 065
     Dates: start: 20190709
  4. VINBLASTINE [Suspect]
     Active Substance: VINBLASTINE
     Indication: Hodgkin^s disease
     Dosage: UNK
     Route: 065
     Dates: start: 20190709

REACTIONS (4)
  - Posterior reversible encephalopathy syndrome [Unknown]
  - Spinal pain [Unknown]
  - Dehydration [Unknown]
  - Tremor [Unknown]

NARRATIVE: CASE EVENT DATE: 20190701
